FAERS Safety Report 16421898 (Version 1)
Quarter: 2019Q2

REPORT INFORMATION
  Report Type: Report from Study
  Country: IT (occurrence: IT)
  Receive Date: 20190612
  Receipt Date: 20190612
  Transmission Date: 20190711
  Serious: Yes (Hospitalization)
  Sender: FDA-Public Use
  Company Number: IT-TEVA-2019-IT-1061058

PATIENT
  Age: 75 Year
  Sex: Female

DRUGS (7)
  1. BEZALIP 400 MG COMPRESSE A RILASCIO PROLUNGATO [Concomitant]
     Route: 048
  2. COUMADIN [Suspect]
     Active Substance: WARFARIN SODIUM
     Indication: ATRIAL FIBRILLATION
     Route: 048
     Dates: start: 20120701, end: 20190418
  3. ZYLORIC 100 MG COMPRESSE [Concomitant]
     Route: 048
  4. LYRICA [Concomitant]
     Active Substance: PREGABALIN
     Route: 048
  5. OLPRESS 10 MG COMPRESSE RIVESTITE CON FILM [Concomitant]
     Route: 048
  6. ATENOLOL. [Suspect]
     Active Substance: ATENOLOL
     Indication: HYPERTENSION
     Route: 048
     Dates: start: 20120101, end: 20190415
  7. IGROTON 25 MG COMPRESSE [Concomitant]
     Active Substance: CHLORTHALIDONE
     Route: 048

REACTIONS (3)
  - Melaena [Recovered/Resolved]
  - Bradycardia [Recovered/Resolved]
  - Asthenia [Recovered/Resolved]

NARRATIVE: CASE EVENT DATE: 20190415
